FAERS Safety Report 21343427 (Version 1)
Quarter: 2022Q3

REPORT INFORMATION
  Report Type: Spontaneous
  Country: US (occurrence: US)
  Receive Date: 20220916
  Receipt Date: 20220916
  Transmission Date: 20221027
  Serious: Yes (Other)
  Sender: FDA-Public Use
  Company Number: US-BRISTOL-MYERS SQUIBB COMPANY-2022-106265

PATIENT
  Age: 70 Year
  Sex: Female
  Weight: 79.378 kg

DRUGS (11)
  1. ELIQUIS [Suspect]
     Active Substance: APIXABAN
     Indication: Cerebrovascular accident prophylaxis
     Dosage: 5 MG, 2X/DAY
     Route: 048
     Dates: start: 20220826
  2. AMIODARONE HYDROCHLORIDE [Suspect]
     Active Substance: AMIODARONE HYDROCHLORIDE
     Indication: Cardiac failure congestive
     Dosage: 200 MG, 2X/DAY
     Route: 065
     Dates: start: 20220902
  3. ENTRESTO [Suspect]
     Active Substance: SACUBITRIL\VALSARTAN
     Indication: Cardiac failure congestive
     Dosage: 24MG-26MG
     Route: 065
     Dates: start: 20220906
  4. SOLIFENACIN [Concomitant]
     Active Substance: SOLIFENACIN
     Dosage: 5 MG, 1X/DAY
     Route: 065
  5. DILTIAZEM [Concomitant]
     Active Substance: DILTIAZEM
     Dosage: 120 MG, 1X/DAY
     Dates: start: 20220826
  6. CARVEDILOL [Concomitant]
     Active Substance: CARVEDILOL
     Dosage: 25 MG, 2X/DAY
  7. VITAMIN D3 [Concomitant]
     Active Substance: CHOLECALCIFEROL
     Dosage: UNK
     Route: 065
  8. FISH OIL [Concomitant]
     Active Substance: FISH OIL
     Dosage: UNK
     Route: 065
  9. HERBALS [Concomitant]
     Active Substance: HERBALS
     Dosage: UNK
     Route: 065
  10. ZINC [Concomitant]
     Active Substance: ZINC
     Dosage: UNK
     Route: 065
  11. CALCIUM [Concomitant]
     Active Substance: CALCIUM
     Dosage: UNK
     Route: 065

REACTIONS (8)
  - Cardiac failure congestive [Unknown]
  - Dry mouth [Unknown]
  - Decreased appetite [Unknown]
  - Epistaxis [Unknown]
  - Blister [Unknown]
  - Chromaturia [Unknown]
  - Flatulence [Unknown]
  - Wheezing [Unknown]

NARRATIVE: CASE EVENT DATE: 20220101
